FAERS Safety Report 5194443-9 (Version None)
Quarter: 2006Q4

REPORT INFORMATION
  Report Type: 
  Country: None (occurrence: None)
  Receive Date: 20061222
  Receipt Date: 20061215
  Transmission Date: 20070319
  Serious: Yes (Other)
  Sender: FDA-Public Use
  Company Number: 150973USA

PATIENT
  Age: 72 Year
  Sex: Female

DRUGS (5)
  1. AMIODARONE HYDROCHLORIDE [Suspect]
     Indication: ARRHYTHMIA
     Dosage: 200 MG (200 MG, 1 IN 1 D), ORAL
     Route: 048
     Dates: start: 20030101
  2. BREVA [Concomitant]
  3. WARFARIN SODIUM [Concomitant]
  4. ATORVASTATIN CALCIUM [Concomitant]
  5. CLORAZEPATE POTASSIUM [Concomitant]

REACTIONS (9)
  - ALOPECIA [None]
  - CHRONIC OBSTRUCTIVE PULMONARY DISEASE [None]
  - GOITRE [None]
  - HAEMATEMESIS [None]
  - HALO VISION [None]
  - HEADACHE [None]
  - MUSCLE TWITCHING [None]
  - ONYCHOMADESIS [None]
  - TREMOR [None]
